FAERS Safety Report 6982142-X (Version None)
Quarter: 2010Q3

REPORT INFORMATION
  Report Type: 
  Country: None (occurrence: None)
  Receive Date: 20100914
  Receipt Date: 20091112
  Transmission Date: 20110219
  Serious: Yes (Other)
  Sender: FDA-Public Use
  Company Number: US-PFIZER INC-2009297541

PATIENT
  Age: 25 Year
  Sex: Female

DRUGS (3)
  1. LYRICA [Suspect]
     Indication: MIGRAINE
     Dosage: UNK
     Dates: start: 20090101
  2. ATIVAN [Suspect]
     Dosage: UNK
  3. PROZAC [Concomitant]
     Dosage: 20 MG, UNK

REACTIONS (2)
  - DEPRESSION [None]
  - SELF-INJURIOUS IDEATION [None]
